FAERS Safety Report 19874411 (Version 1)
Quarter: 2021Q3

REPORT INFORMATION
  Report Type: Spontaneous
  Country: CA (occurrence: CA)
  Receive Date: 20210923
  Receipt Date: 20210923
  Transmission Date: 20211014
  Serious: Yes (Hospitalization)
  Sender: FDA-Public Use
  Company Number: CA-TEVA-2021-CA-1956353

PATIENT
  Age: 72 Year
  Sex: Female

DRUGS (3)
  1. DILTIAZEM. [Suspect]
     Active Substance: DILTIAZEM
     Indication: HYPERTENSION
     Route: 048
  2. DILTIAZEM. [Interacting]
     Active Substance: DILTIAZEM
     Indication: ACUTE MYOCARDIAL INFARCTION
  3. RIVAROXABAN (BAY59?7939) VS. ASA [Interacting]
     Active Substance: RIVAROXABAN
     Indication: ATRIAL FIBRILLATION
     Route: 048

REACTIONS (3)
  - Oesophageal haemorrhage [Unknown]
  - Drug interaction [Unknown]
  - Bleeding time prolonged [Unknown]
